FAERS Safety Report 4281946-4 (Version None)
Quarter: 2004Q1

REPORT INFORMATION
  Report Type: 
  Country: None (occurrence: None)
  Receive Date: 20040128
  Receipt Date: 20040112
  Transmission Date: 20041129
  Serious: Yes (Death)
  Sender: FDA-Public Use
  Company Number: 430001X04GBR

PATIENT
  Age: 66 Year
  Sex: Female

DRUGS (4)
  1. NOVANTRONE [Suspect]
     Indication: B-CELL LYMPHOMA
  2. FLUDARABINE PHOSPHATE [Concomitant]
  3. DEXAMETHASONE [Concomitant]
  4. ANTIBIOTICS [Concomitant]

REACTIONS (3)
  - CELLULITIS [None]
  - CONDITION AGGRAVATED [None]
  - PULMONARY EMBOLISM [None]
